FAERS Safety Report 17842645 (Version 3)
Quarter: 2020Q3

REPORT INFORMATION
  Report Type: Spontaneous
  Country: JP (occurrence: JP)
  Receive Date: 20200529
  Receipt Date: 20200807
  Transmission Date: 20201103
  Serious: Yes (Hospitalization)
  Sender: FDA-Public Use
  Company Number: JP-JNJFOC-20200530679

PATIENT
  Age: 49 Year
  Sex: Female

DRUGS (10)
  1. REMICADE [Suspect]
     Active Substance: INFLIXIMAB
     Indication: COLITIS ULCERATIVE
     Dosage: 5 MILLIGRAM/KILOGRAM, QD
     Route: 042
     Dates: start: 20190404
  2. REMICADE [Suspect]
     Active Substance: INFLIXIMAB
     Dosage: 5 MILLIGRAM/KILOGRAM, QD
     Route: 042
     Dates: start: 20200312, end: 20200312
  3. BILANOA [Concomitant]
     Active Substance: BILASTINE
     Dosage: 20 MILLIGRAM, QD
     Route: 048
     Dates: start: 20200423
  4. MIYA?BM [Concomitant]
     Active Substance: CLOSTRIDIUM BUTYRICUM SPORES STRAIN M-55
     Dosage: 3 GRAM, QD
     Route: 048
     Dates: start: 20190214
  5. LAC?B [Concomitant]
     Active Substance: BIFIDOBACTERIUM SPP.
     Dosage: 3 GRAM, QD
     Route: 048
     Dates: start: 20200226
  6. TAMOXIFEN [Concomitant]
     Active Substance: TAMOXIFEN
     Dosage: UNK
     Route: 048
  7. PENTASA [Concomitant]
     Active Substance: MESALAMINE
     Dosage: 4000 MILLIGRAM, QD
     Route: 048
     Dates: start: 20130403
  8. REBAMIPIDE [Concomitant]
     Active Substance: REBAMIPIDE
     Dosage: 300 MILLIGRAM, QD
     Route: 048
     Dates: start: 20190221
  9. FAMOTIDINE. [Concomitant]
     Active Substance: FAMOTIDINE
     Dosage: 40 MILLIGRAM, QD
     Route: 048
     Dates: start: 20200409
  10. BUDESONIDE. [Concomitant]
     Active Substance: BUDESONIDE
     Route: 054
     Dates: start: 20190215

REACTIONS (1)
  - Herpes pharyngitis [Recovering/Resolving]

NARRATIVE: CASE EVENT DATE: 20200504
